FAERS Safety Report 25961003 (Version 3)
Quarter: 2025Q4

REPORT INFORMATION
  Report Type: Spontaneous
  Country: TR (occurrence: TR)
  Receive Date: 20251027
  Receipt Date: 20251230
  Transmission Date: 20260118
  Serious: Yes (Hospitalization, Disabling, Other)
  Sender: JOHNSON AND JOHNSON
  Company Number: TR-JNJFOC-20251024420

PATIENT
  Age: 39 Year
  Sex: Male
  Weight: 70 kg

DRUGS (7)
  1. TOPAMAX [Suspect]
     Active Substance: TOPIRAMATE
     Indication: Generalised tonic-clonic seizure
     Route: 048
     Dates: start: 20220902, end: 20221017
  2. VALPROIC ACID [Interacting]
     Active Substance: VALPROIC ACID
     Indication: Status epilepticus
     Dosage: LOADING DOSE
  3. VALPROIC ACID [Interacting]
     Active Substance: VALPROIC ACID
     Dosage: LOADING DOSE
  4. LEVETIRACETAM [Concomitant]
     Active Substance: LEVETIRACETAM
     Indication: Generalised tonic-clonic seizure
  5. LEVETIRACETAM [Concomitant]
     Active Substance: LEVETIRACETAM
     Indication: Partial seizures
  6. ASPIRIN [Concomitant]
     Active Substance: ASPIRIN
     Indication: Product used for unknown indication
  7. LACOSAMIDE [Concomitant]
     Active Substance: LACOSAMIDE
     Indication: Generalised tonic-clonic seizure

REACTIONS (3)
  - Metabolic encephalopathy [Recovered/Resolved]
  - Holmes tremor [Recovering/Resolving]
  - Drug interaction [Recovering/Resolving]

NARRATIVE: CASE EVENT DATE: 20220928
